FAERS Safety Report 5098044-2 (Version None)
Quarter: 2006Q3

REPORT INFORMATION
  Report Type: 
  Country: None (occurrence: None)
  Receive Date: 20060906
  Receipt Date: 20060329
  Transmission Date: 20061208
  Serious: No
  Sender: FDA-Public Use
  Company Number: US-GLAXOSMITHKLINE-A0599529A

PATIENT
  Age: 54 Year
  Sex: Female

DRUGS (10)
  1. REQUIP [Suspect]
     Indication: RESTLESS LEGS SYNDROME
     Dosage: 1MG PER DAY
     Route: 048
     Dates: start: 20060101
  2. AMBIEN [Concomitant]
  3. LOTENSIN [Concomitant]
  4. LEXAPRO [Concomitant]
  5. SINGULAIR [Concomitant]
  6. CYMBALTA [Concomitant]
  7. METFORMIN HCL [Concomitant]
  8. VERAPAMIL [Concomitant]
  9. ABILIFY [Concomitant]
  10. LIPITOR [Concomitant]

REACTIONS (3)
  - SOMNOLENCE [None]
  - THINKING ABNORMAL [None]
  - TINNITUS [None]
